FAERS Safety Report 8522221-9 (Version None)
Quarter: 2012Q3

REPORT INFORMATION
  Report Type: 
  Country: None (occurrence: None)
  Receive Date: 20120719
  Receipt Date: 20120710
  Transmission Date: 20120928
  Serious: Yes (Hospitalization, Disabling, Other)
  Sender: FDA-Public Use
  Company Number: US-009507513-1112USA01776

PATIENT

DRUGS (21)
  1. FOSAMAX [Suspect]
     Indication: OSTEOPOROSIS
     Dosage: 35 MG, QW
     Route: 048
     Dates: start: 19991123
  2. ENBREL [Concomitant]
     Indication: RHEUMATOID ARTHRITIS
     Dosage: 25 MG, UNK
     Dates: start: 20020101
  3. CALCIUM (UNSPECIFIED) [Concomitant]
     Indication: OSTEOPOROSIS
  4. FOSAMAX [Suspect]
     Dosage: 40 MG, QW
     Route: 048
     Dates: start: 20001116
  5. FOSAMAX [Suspect]
     Indication: OSTEOPENIA
     Dosage: 5 MG, UNK
     Route: 048
     Dates: start: 20000601
  6. FOSAMAX [Suspect]
     Dosage: 70 MG, QW
     Route: 048
     Dates: start: 20100915, end: 20110101
  7. METICORTEN [Concomitant]
     Indication: RHEUMATOID ARTHRITIS
     Dosage: 5 MG, QD
  8. PREDNISONE [Concomitant]
     Indication: RHEUMATOID ARTHRITIS
     Dosage: UNK
     Dates: start: 20020101
  9. SULFASALAZINE [Concomitant]
     Indication: RHEUMATOID ARTHRITIS
     Dosage: 1000 MG, BID
     Dates: start: 19990101
  10. FOSAMAX [Suspect]
     Dosage: 70 MG, QW
     Route: 048
     Dates: start: 20010510
  11. FOSAMAX [Suspect]
     Dosage: 70 MG, UNK
     Route: 048
     Dates: start: 20100101, end: 20110126
  12. FOSAMAX [Suspect]
     Dosage: 70 MG, QW
     Route: 048
     Dates: start: 20080307
  13. ASTELIN [Concomitant]
     Indication: RHINITIS ALLERGIC
     Dates: start: 20050708
  14. FOLIC ACID [Concomitant]
     Dosage: UNK
     Dates: start: 19900101
  15. METHOTREXATE [Concomitant]
     Indication: RHEUMATOID ARTHRITIS
     Dosage: UNK
     Dates: start: 20010101
  16. MIRAPEX [Concomitant]
     Indication: RHEUMATOID ARTHRITIS
     Dosage: UNK
     Dates: start: 20020101
  17. VITAMIN D (UNSPECIFIED) [Concomitant]
     Indication: OSTEOPOROSIS
     Dosage: 2000 IU, QD
  18. THERAPY UNSPECIFIED [Concomitant]
     Indication: SLEEP DISORDER
     Dates: start: 20110719
  19. FOSAMAX [Suspect]
     Dosage: 70 MG, QW
     Route: 048
     Dates: start: 20071121, end: 20100101
  20. FOSAMAX [Suspect]
  21. ATREXEL [Concomitant]
     Indication: RHEUMATOID ARTHRITIS
     Dosage: 7.5 MG, QW
     Dates: start: 20020101

REACTIONS (54)
  - DEVICE BREAKAGE [None]
  - RHEUMATOID ARTHRITIS [None]
  - CELLULITIS [None]
  - OSTEOARTHRITIS [None]
  - RESTLESS LEGS SYNDROME [None]
  - JOINT EFFUSION [None]
  - LIGAMENT SPRAIN [None]
  - SKIN EXFOLIATION [None]
  - HYPERSOMNIA [None]
  - URINARY INCONTINENCE [None]
  - BACTERIAL TEST POSITIVE [None]
  - OEDEMA PERIPHERAL [None]
  - RASH [None]
  - OFF LABEL USE [None]
  - SYNOVITIS [None]
  - INSOMNIA [None]
  - CHRONIC OBSTRUCTIVE PULMONARY DISEASE [None]
  - GLUCOSE TOLERANCE IMPAIRED [None]
  - WEIGHT INCREASED [None]
  - IMPAIRED HEALING [None]
  - CONTUSION [None]
  - VENOUS INSUFFICIENCY [None]
  - COLITIS [None]
  - MUSCULOSKELETAL DEFORMITY [None]
  - CARDIAC FAILURE CONGESTIVE [None]
  - DYSPNOEA [None]
  - MUSCLE SPASMS [None]
  - LOW TURNOVER OSTEOPATHY [None]
  - FALL [None]
  - PARAESTHESIA [None]
  - MEMORY IMPAIRMENT [None]
  - URINE LEUKOCYTE ESTERASE [None]
  - HYPOKALAEMIA [None]
  - SMEAR CERVIX ABNORMAL [None]
  - TOOTH DISORDER [None]
  - COUGH [None]
  - ANXIETY [None]
  - BLOOD UREA NITROGEN/CREATININE RATIO INCREASED [None]
  - DYSPEPSIA [None]
  - LIMB DEFORMITY [None]
  - FOOT DEFORMITY [None]
  - TINEA PEDIS [None]
  - ESSENTIAL HYPERTENSION [None]
  - SKELETAL INJURY [None]
  - DEPRESSION [None]
  - DRUG ADMINISTRATION ERROR [None]
  - STRESS FRACTURE [None]
  - OBSTRUCTIVE AIRWAYS DISORDER [None]
  - BACK PAIN [None]
  - HEADACHE [None]
  - FEMUR FRACTURE [None]
  - OSTEONECROSIS [None]
  - SLEEP DISORDER [None]
  - GAIT DISTURBANCE [None]
